FAERS Safety Report 25444653 (Version 1)
Quarter: 2025Q2

REPORT INFORMATION
  Report Type: Spontaneous
  Country: IT (occurrence: IT)
  Receive Date: 20250617
  Receipt Date: 20250617
  Transmission Date: 20250716
  Serious: Yes (Other)
  Sender: CHEPLAPHARM
  Company Number: IT-CHEPLA-2025007330

PATIENT
  Age: 49 Year
  Sex: Female

DRUGS (11)
  1. GANCICLOVIR [Suspect]
     Active Substance: GANCICLOVIR
     Indication: Cytomegalovirus infection
  2. GANCICLOVIR [Suspect]
     Active Substance: GANCICLOVIR
     Indication: Cytomegalovirus infection
  3. GANCICLOVIR [Suspect]
     Active Substance: GANCICLOVIR
     Indication: Cytomegalovirus infection
  4. VALGANCICLOVIR [Suspect]
     Active Substance: VALGANCICLOVIR
     Indication: Cytomegalovirus infection
  5. MYCOPHENOLATE MOFETIL [Concomitant]
     Active Substance: MYCOPHENOLATE MOFETIL
     Indication: Heart transplant rejection
  6. MYCOPHENOLATE MOFETIL [Concomitant]
     Active Substance: MYCOPHENOLATE MOFETIL
     Indication: Heart transplant rejection
  7. PREDNISONE [Concomitant]
     Active Substance: PREDNISONE
     Indication: Heart transplant rejection
     Dosage: 0.7 MG/KG/DAY WITH A SLOW TAPERING REGIMEN?DAILY DOSE: 0.7 MILLIGRAM/KG
     Route: 048
  8. PREDNISONE [Concomitant]
     Active Substance: PREDNISONE
     Indication: Heart transplant rejection
     Dosage: 0.3 MG/KG/DAY?DAILY DOSE: 0.3 MILLIGRAM/KG
     Route: 048
  9. PREDNISONE [Concomitant]
     Active Substance: PREDNISONE
     Indication: Heart transplant rejection
     Dosage: 0.2 MG/KG/DAY?DAILY DOSE: 0.2 MILLIGRAM/KG
     Route: 048
  10. PREDNISONE [Concomitant]
     Active Substance: PREDNISONE
     Indication: Heart transplant rejection
     Dosage: 0.1 MG/KG/DAY?DAILY DOSE: 0.1 MILLIGRAM/KG
     Route: 048
  11. TACROLIMUS [Concomitant]
     Active Substance: TACROLIMUS
     Indication: Heart transplant rejection

REACTIONS (3)
  - Myocarditis [Unknown]
  - Leukopenia [Recovered/Resolved]
  - Off label use [Unknown]
